FAERS Safety Report 25251478 (Version 2)
Quarter: 2025Q3

REPORT INFORMATION
  Report Type: Report from Study
  Country: PA (occurrence: PA)
  Receive Date: 20250429
  Receipt Date: 20250803
  Transmission Date: 20251020
  Serious: Yes (Death)
  Sender: ALEXION PHARMACEUTICALS
  Company Number: PA-AstraZeneca-CH-00857280A

PATIENT
  Sex: Female

DRUGS (1)
  1. DAPAGLIFLOZIN [Suspect]
     Active Substance: DAPAGLIFLOZIN
     Dosage: 10 MILLIGRAM, BID
     Route: 065

REACTIONS (2)
  - Death [Fatal]
  - Off label use [Unknown]
